FAERS Safety Report 20752952 (Version 1)
Quarter: 2022Q2

REPORT INFORMATION
  Report Type: Spontaneous
  Country: US (occurrence: None)
  Receive Date: 20220426
  Receipt Date: 20220426
  Transmission Date: 20220721
  Serious: No
  Sender: FDA-Public Use
  Company Number: US-ROCHE-2971939

PATIENT
  Sex: Female

DRUGS (1)
  1. ESBRIET [Suspect]
     Active Substance: PIRFENIDONE
     Indication: Drug therapy
     Dosage: TAKE 1 TABLET (801MG) BY MOUTH THREE TIMES A DAY WITH MEALS
     Route: 048
     Dates: start: 20181031

REACTIONS (2)
  - Sinusitis [Unknown]
  - Abdominal discomfort [Unknown]
